FAERS Safety Report 5556895-1 (Version None)
Quarter: 2007Q4

REPORT INFORMATION
  Report Type: 
  Country: None (occurrence: None)
  Receive Date: 20071211
  Receipt Date: 20071211
  Transmission Date: 20080405
  Serious: Yes (Life-Threatening, Hospitalization)
  Sender: FDA-Public Use
  Company Number: None

PATIENT
  Age: 53 Year
  Sex: Male
  Weight: 81.6475 kg

DRUGS (2)
  1. CELEBREX [Suspect]
     Indication: ANKYLOSING SPONDYLITIS
     Dosage: 400 MG. EVERY DAY PO
     Route: 048
     Dates: start: 20040515, end: 20071102
  2. CELEBREX [Suspect]
     Indication: ARTHRITIS
     Dosage: 400 MG. EVERY DAY PO
     Route: 048
     Dates: start: 20040515, end: 20071102

REACTIONS (1)
  - MYOCARDIAL INFARCTION [None]
